FAERS Safety Report 6261910-6 (Version None)
Quarter: 2009Q3

REPORT INFORMATION
  Report Type: 
  Country: None (occurrence: None)
  Receive Date: 20090709
  Receipt Date: 20090701
  Transmission Date: 20100115
  Serious: Yes (Life-Threatening, Hospitalization)
  Sender: FDA-Public Use
  Company Number: B0576072A

PATIENT
  Sex: Female
  Weight: 43 kg

DRUGS (11)
  1. VALTREX [Suspect]
     Indication: HERPES ZOSTER
     Dosage: 500MG PER DAY
     Route: 048
     Dates: start: 20090523, end: 20090525
  2. NAFAMOSTAT MESILATE [Suspect]
     Indication: DRUG USE FOR UNKNOWN INDICATION
     Route: 042
     Dates: start: 20090526
  3. PARIET [Concomitant]
     Indication: GASTRITIS
     Dosage: 10MG PER DAY
     Route: 048
  4. MEVALOTIN [Concomitant]
     Route: 048
  5. DEPAS [Concomitant]
     Dosage: .5MG PER DAY
     Route: 048
  6. ALFAROL [Concomitant]
     Dosage: .25MCG PER DAY
     Route: 048
  7. CALTAN [Concomitant]
     Dosage: 1500MG PER DAY
     Route: 048
  8. PURSENNID [Concomitant]
     Route: 048
  9. KALIMATE [Concomitant]
     Route: 048
  10. MAGNESIUM OXIDE [Concomitant]
     Route: 048
  11. HEPARIN [Concomitant]
     Dates: end: 20090526

REACTIONS (14)
  - ATRIAL FIBRILLATION [None]
  - BLOOD PRESSURE ABNORMAL [None]
  - C-REACTIVE PROTEIN INCREASED [None]
  - CARDIAC FAILURE CHRONIC [None]
  - CARDIO-RESPIRATORY ARREST [None]
  - CARDIOVASCULAR DISORDER [None]
  - EPISTAXIS [None]
  - FIBRIN D DIMER INCREASED [None]
  - FIBRIN DEGRADATION PRODUCTS INCREASED [None]
  - HAEMORRHAGE [None]
  - LOSS OF CONSCIOUSNESS [None]
  - RENAL FAILURE ACUTE [None]
  - SOMNOLENCE [None]
  - THROMBOSIS [None]
